FAERS Safety Report 9607505 (Version 2)
Quarter: 2013Q4

REPORT INFORMATION
  Report Type: Spontaneous
  Country: US (occurrence: None)
  Receive Date: 20131007
  Receipt Date: 20131023
  Transmission Date: 20140711
  Serious: Yes (Hospitalization, Other)
  Sender: FDA-Public Use
  Company Number: 2013P1019351

PATIENT
  Age: 54 Year
  Sex: Female
  Weight: 47.17 kg

DRUGS (4)
  1. OXTELLAR XR [Suspect]
     Indication: EPILEPSY
     Route: 048
     Dates: start: 201307
  2. ZONEGRAN [Concomitant]
  3. KLONOPIN [Concomitant]
  4. ZOLOFT [Concomitant]

REACTIONS (5)
  - Contusion [None]
  - Blood sodium decreased [None]
  - Fall [None]
  - Ocular hyperaemia [None]
  - Muscular weakness [None]
